FAERS Safety Report 5103012-8 (Version None)
Quarter: 2006Q3

REPORT INFORMATION
  Report Type: 
  Country: None (occurrence: None)
  Receive Date: 20060908
  Receipt Date: 20060828
  Transmission Date: 20061208
  Serious: Yes (Death)
  Sender: FDA-Public Use
  Company Number: B0437051A

PATIENT
  Age: 30 Year
  Sex: Male

DRUGS (1)
  1. EPIVIR [Suspect]
     Indication: HEPATITIS B
     Dosage: 100 MG / PER DAY /

REACTIONS (9)
  - COMA HEPATIC [None]
  - DRUG INEFFECTIVE [None]
  - ENTEROCOLITIS INFECTIOUS [None]
  - GENE MUTATION [None]
  - HEPATIC FAILURE [None]
  - ILEUS PARALYTIC [None]
  - RENAL FAILURE [None]
  - RESPIRATORY FAILURE [None]
  - SEPSIS [None]
